FAERS Safety Report 12242572 (Version 6)
Quarter: 2017Q3

REPORT INFORMATION
  Report Type: Spontaneous
  Country: JP (occurrence: JP)
  Receive Date: 20160406
  Receipt Date: 20170927
  Transmission Date: 20171127
  Serious: Yes (Hospitalization, Other)
  Sender: FDA-Public Use
  Company Number: JP-PFIZER INC-2016188544

PATIENT
  Age: 75 Year
  Sex: Female

DRUGS (5)
  1. GASMOTIN [Concomitant]
     Active Substance: MOSAPRIDE CITRATE
     Dosage: UNK
     Route: 048
  2. LYRICA [Suspect]
     Active Substance: PREGABALIN
     Indication: NECK PAIN
     Dosage: 25 MG, 2X/DAY
     Route: 048
     Dates: start: 20160222, end: 20160307
  3. LYRICA [Suspect]
     Active Substance: PREGABALIN
     Dosage: 75 MG, 2X/DAY
     Route: 048
     Dates: start: 20160322, end: 20160323
  4. ATENOLOL. [Concomitant]
     Active Substance: ATENOLOL
     Dosage: UNK
     Route: 048
  5. DAI-KENCHU-TO [Concomitant]
     Active Substance: MALTOSE
     Dosage: UNK
     Route: 048

REACTIONS (9)
  - Haematemesis [Recovered/Resolved]
  - Paraesthesia [Unknown]
  - Visual acuity reduced [Recovering/Resolving]
  - Dizziness [Not Recovered/Not Resolved]
  - Accommodation disorder [Recovering/Resolving]
  - Intraocular pressure increased [Unknown]
  - Intentional product use issue [Unknown]
  - Retinal oedema [Unknown]
  - Vision blurred [Recovering/Resolving]

NARRATIVE: CASE EVENT DATE: 20160222
